FAERS Safety Report 21557912 (Version 1)
Quarter: 2022Q4

REPORT INFORMATION
  Report Type: Spontaneous
  Country: BE (occurrence: BE)
  Receive Date: 20221106
  Receipt Date: 20221106
  Transmission Date: 20230113
  Serious: Yes (Hospitalization, Other)
  Sender: FDA-Public Use
  Company Number: BE-JNJFOC-20221052114

PATIENT
  Age: 87 Year
  Sex: Male

DRUGS (5)
  1. ERLEADA [Suspect]
     Active Substance: APALUTAMIDE
     Indication: Prostate cancer
     Dosage: 4 TABLETS
     Route: 048
     Dates: start: 202103, end: 202208
  2. ERLEADA [Suspect]
     Active Substance: APALUTAMIDE
     Dosage: 2 TABLETS/ DAY
     Route: 048
  3. FIRMAGON [Suspect]
     Active Substance: DEGARELIX ACETATE
     Indication: Product used for unknown indication
     Route: 065
  4. BISOPROLOL [Concomitant]
     Active Substance: BISOPROLOL
     Indication: Product used for unknown indication
     Route: 065
  5. LISINOPRIL [Concomitant]
     Active Substance: LISINOPRIL
     Indication: Product used for unknown indication
     Route: 065

REACTIONS (10)
  - Pneumonia [Unknown]
  - Pulmonary hypertension [Unknown]
  - Electrocardiogram QT prolonged [Unknown]
  - Spinal cord compression [Unknown]
  - Cardiac disorder [Unknown]
  - Dyspnoea [Unknown]
  - Left ventricular dysfunction [Recovered/Resolved]
  - Osteoporosis [Unknown]
  - Fatigue [Recovered/Resolved]
  - Gastrointestinal disorder [Recovered/Resolved]

NARRATIVE: CASE EVENT DATE: 20210301
